FAERS Safety Report 20862039 (Version 1)
Quarter: 2022Q2

REPORT INFORMATION
  Report Type: Report from Study
  Country: GB (occurrence: GB)
  Receive Date: 20220523
  Receipt Date: 20220523
  Transmission Date: 20220721
  Serious: Yes (Hospitalization, Other)
  Sender: FDA-Public Use
  Company Number: GB-TAKEDA-GB201934393

PATIENT
  Age: 50 Year
  Sex: Female
  Weight: 58 kg

DRUGS (9)
  1. TEDUGLUTIDE [Suspect]
     Active Substance: TEDUGLUTIDE
     Indication: Short-bowel syndrome
     Dosage: 2.6 MILLIGRAM, QD
     Route: 042
     Dates: start: 20130401, end: 20140101
  2. TEDUGLUTIDE [Suspect]
     Active Substance: TEDUGLUTIDE
     Indication: Short-bowel syndrome
     Dosage: 2.6 MILLIGRAM, QD
     Route: 042
     Dates: start: 20130401, end: 20140101
  3. TEDUGLUTIDE [Suspect]
     Active Substance: TEDUGLUTIDE
     Indication: Short-bowel syndrome
     Dosage: 2.6 MILLIGRAM, QD
     Route: 042
     Dates: start: 20130401, end: 20140101
  4. TEDUGLUTIDE [Suspect]
     Active Substance: TEDUGLUTIDE
     Indication: Short-bowel syndrome
     Dosage: 2.6 MILLIGRAM, QD
     Route: 042
     Dates: start: 20130401, end: 20140101
  5. CEFUROXIME [Concomitant]
     Active Substance: CEFUROXIME
     Indication: Sepsis
     Dosage: 1.50 GRAM, TID
     Route: 042
     Dates: start: 20170127, end: 20170202
  6. TAUROLIDINE [Concomitant]
     Active Substance: TAUROLIDINE
     Indication: Device related sepsis
     Dosage: 3 MILLILITER, QD
     Route: 042
     Dates: start: 20160909
  7. TAUROLIDINE [Concomitant]
     Active Substance: TAUROLIDINE
     Indication: Infection prophylaxis
  8. ESTRADIOL [Concomitant]
     Active Substance: ESTRADIOL
     Indication: Menopause
     Dosage: 75 MICROGRAM, 2/WEEK
     Route: 062
  9. OMEPRAZOLE [Concomitant]
     Active Substance: OMEPRAZOLE
     Indication: Jejunostomy
     Dosage: 40 MILLIGRAM, BID
     Route: 048

REACTIONS (1)
  - Vascular device infection [Recovered/Resolved]

NARRATIVE: CASE EVENT DATE: 20191010
